APPROVED DRUG PRODUCT: INOCOR
Active Ingredient: INAMRINONE LACTATE
Strength: EQ 5MG BASE/ML
Dosage Form/Route: INJECTABLE;INJECTION
Application: N018700 | Product #001
Applicant: SANOFI AVENTIS US LLC
Approved: Jul 31, 1984 | RLD: No | RS: No | Type: DISCN